FAERS Safety Report 7015345-9 (Version None)
Quarter: 2010Q3

REPORT INFORMATION
  Report Type: 
  Country: None (occurrence: None)
  Receive Date: 20100922
  Receipt Date: 20100907
  Transmission Date: 20110219
  Serious: Yes (Other)
  Sender: FDA-Public Use
  Company Number: 018346

PATIENT
  Sex: Female
  Weight: 109.8 kg

DRUGS (3)
  1. CIMZIA [Suspect]
     Indication: CROHN'S DISEASE
     Dosage: (400 MG 1X/MONTH SUBCUTANEOUS)
     Route: 058
     Dates: start: 20100212
  2. DIOVAN /01319601/ [Concomitant]
  3. XANAX [Concomitant]

REACTIONS (9)
  - ANXIETY [None]
  - BACK PAIN [None]
  - CALCULUS URINARY [None]
  - FATIGUE [None]
  - HYPERTENSION [None]
  - OCULAR ICTERUS [None]
  - PAIN [None]
  - URINARY TRACT INFECTION [None]
  - URINARY TRACT OBSTRUCTION [None]
